FAERS Safety Report 5849788-3 (Version None)
Quarter: 2008Q3

REPORT INFORMATION
  Report Type: 
  Country: None (occurrence: None)
  Receive Date: 20080818
  Receipt Date: 20080818
  Transmission Date: 20090109
  Serious: Yes (Other)
  Sender: FDA-Public Use
  Company Number: None

PATIENT

DRUGS (1)
  1. PHENTERMINE [Suspect]
     Indication: WEIGHT CONTROL

REACTIONS (2)
  - DRUG INEFFECTIVE [None]
  - HEADACHE [None]
